FAERS Safety Report 9948942 (Version 1)
Quarter: 2014Q1

REPORT INFORMATION
  Report Type: Spontaneous
  Country: US (occurrence: None)
  Receive Date: 20140122
  Receipt Date: 20140122
  Transmission Date: 20141002
  Serious: Yes (Other)
  Sender: FDA-Public Use
  Company Number: AEGR000212

PATIENT
  Age: 66 Year
  Sex: Male
  Weight: 76.2 kg

DRUGS (3)
  1. JUXTAPID [Suspect]
     Indication: TYPE IIA HYPERLIPIDAEMIA
     Route: 048
     Dates: start: 20131017, end: 2013
  2. MICARDIS (TELMISARTAN) [Concomitant]
  3. DOXAZOSIN (DOXAZOSIN MESILATE) [Concomitant]

REACTIONS (2)
  - Vomiting [None]
  - Diarrhoea [None]
